APPROVED DRUG PRODUCT: METFORMIN HYDROCHLORIDE
Active Ingredient: METFORMIN HYDROCHLORIDE
Strength: 750MG
Dosage Form/Route: TABLET, EXTENDED RELEASE;ORAL
Application: A213359 | Product #002 | TE Code: AB
Applicant: UNICHEM LABORATORIES LTD
Approved: Aug 11, 2021 | RLD: No | RS: No | Type: RX